FAERS Safety Report 9151791 (Version 1)
Quarter: 2013Q1

REPORT INFORMATION
  Report Type: Spontaneous
  Country: US (occurrence: US)
  Receive Date: 20130308
  Receipt Date: 20130308
  Transmission Date: 20140127
  Serious: Yes (Death)
  Sender: FDA-Public Use
  Company Number: US-ASTELLAS-2013US001775

PATIENT
  Sex: Male
  Weight: 55 kg

DRUGS (3)
  1. XTANDI [Suspect]
     Indication: PROSTATE CANCER
     Dosage: 160 MG, UID/QD
     Route: 048
  2. LUPRON [Concomitant]
     Indication: PROSTATE CANCER
     Dosage: UNK, ONCE EVERY 3 MONTHS
     Route: 065
  3. ZOMETA [Concomitant]
     Indication: BONE CANCER
     Dosage: UNK
     Route: 065

REACTIONS (1)
  - Malignant neoplasm progression [Fatal]
